FAERS Safety Report 16969933 (Version 1)
Quarter: 2019Q4

REPORT INFORMATION
  Report Type: Spontaneous
  Country: US (occurrence: US)
  Receive Date: 20190911
  Receipt Date: 20190911
  Transmission Date: 20200122
  Serious: Yes (Hospitalization)
  Sender: FDA-Public Use
  Company Number: None

PATIENT
  Age: 71 Year
  Sex: Male
  Weight: 109.18 kg

DRUGS (3)
  1. LEVETIRACETAM. [Suspect]
     Active Substance: LEVETIRACETAM
     Indication: SEIZURE
     Route: 048
     Dates: start: 20190422, end: 20190506
  2. LEVETIRACETAM. [Suspect]
     Active Substance: LEVETIRACETAM
     Indication: SEIZURE PROPHYLAXIS
  3. LEVETIRACETAM. [Suspect]
     Active Substance: LEVETIRACETAM
     Indication: CRANIOTOMY

REACTIONS (9)
  - Glomerular filtration rate decreased [None]
  - Dizziness [None]
  - Pyrexia [None]
  - Diarrhoea [None]
  - Headache [None]
  - Viral infection [None]
  - Confusional state [None]
  - Pancytopenia [None]
  - Asthenia [None]

NARRATIVE: CASE EVENT DATE: 20190503
